FAERS Safety Report 20724729 (Version 1)
Quarter: 2022Q2

REPORT INFORMATION
  Report Type: Spontaneous
  Country: US (occurrence: None)
  Receive Date: 20220418
  Receipt Date: 20220418
  Transmission Date: 20220721
  Serious: Yes (Other)
  Sender: FDA-Public Use
  Company Number: None

PATIENT
  Age: 43 Year
  Sex: Male
  Weight: 112.95 kg

DRUGS (9)
  1. LYBALVI [Suspect]
     Active Substance: OLANZAPINE\SAMIDORPHAN L-MALATE
     Indication: Schizophrenia
     Dosage: FREQUENCY : AT BEDTIME;?
     Route: 048
  2. GLIPIZIDE [Concomitant]
     Active Substance: GLIPIZIDE
  3. KLONOPIN [Concomitant]
     Active Substance: CLONAZEPAM
  4. LANTUS [Concomitant]
     Active Substance: INSULIN GLARGINE
  5. FOLIC ACID [Concomitant]
     Active Substance: FOLIC ACID
  6. PRAVASTATIN [Concomitant]
     Active Substance: PRAVASTATIN
  7. PROPRANOLOL [Concomitant]
     Active Substance: PROPRANOLOL HYDROCHLORIDE
  8. TRULICITY [Concomitant]
     Active Substance: DULAGLUTIDE
  9. VITAMIN B12 [Concomitant]
     Active Substance: CYANOCOBALAMIN

REACTIONS (3)
  - Dyspnoea [None]
  - Chest discomfort [None]
  - Weight gain poor [None]

NARRATIVE: CASE EVENT DATE: 20220215
